FAERS Safety Report 14919166 (Version 1)
Quarter: 2018Q2

REPORT INFORMATION
  Report Type: Spontaneous
  Country: GB (occurrence: GB)
  Receive Date: 20180521
  Receipt Date: 20180521
  Transmission Date: 20180711
  Serious: Yes (Hospitalization)
  Sender: FDA-Public Use
  Company Number: GB-TEVA-2018-GB-893379

PATIENT
  Age: 80 Year
  Sex: Male
  Weight: 83 kg

DRUGS (2)
  1. DEXAMETHASONE. [Suspect]
     Active Substance: DEXAMETHASONE
     Indication: ADENOSQUAMOUS CELL LUNG CANCER
     Dosage: 8MG DAILY FOR ONE WEEK, THEN 4MG DAILY FOR ONE WEEK THEN 2MG DAILY FOR TWO WEEKS
     Route: 048
     Dates: start: 20171019, end: 20171106
  2. PREDNISOLONE. [Concomitant]
     Active Substance: PREDNISOLONE
     Dosage: 10 MILLIGRAM DAILY;
     Route: 065

REACTIONS (1)
  - Confusional state [Recovering/Resolving]

NARRATIVE: CASE EVENT DATE: 20171019
